FAERS Safety Report 15343751 (Version 5)
Quarter: 2020Q2

REPORT INFORMATION
  Report Type: Spontaneous
  Country: US (occurrence: US)
  Receive Date: 20180903
  Receipt Date: 20200427
  Transmission Date: 20200713
  Serious: No
  Sender: FDA-Public Use
  Company Number: US-PFIZER INC-2018354167

PATIENT
  Age: 65 Year
  Sex: Male

DRUGS (6)
  1. LYRICA CR [Suspect]
     Active Substance: PREGABALIN
     Dosage: 330 MG, 1X/DAY
     Route: 048
  2. LEVOFLOXACIN. [Concomitant]
     Active Substance: LEVOFLOXACIN
     Dosage: UNK
     Dates: start: 20180811, end: 2018
  3. LYRICA [Suspect]
     Active Substance: PREGABALIN
     Indication: PAIN
     Dosage: UNK, 2X/DAY (225-300MG)
     Dates: start: 2013
  4. LYRICA [Suspect]
     Active Substance: PREGABALIN
     Indication: SPINAL CORD INJURY
     Dosage: 300 MG, UNK
  5. LYRICA CR [Suspect]
     Active Substance: PREGABALIN
     Dosage: 82.5 MG, 1X/DAY
     Route: 048
  6. AUGMENTIN [Concomitant]
     Active Substance: AMOXICILLIN\CLAVULANATE POTASSIUM
     Dosage: UNK
     Dates: start: 20180629, end: 2018

REACTIONS (2)
  - Intentional product use issue [Recovered/Resolved]
  - Bronchitis [Recovered/Resolved]
